FAERS Safety Report 8161723-4 (Version None)
Quarter: 2012Q1

REPORT INFORMATION
  Report Type: 
  Country: None (occurrence: None)
  Receive Date: 20120224
  Receipt Date: 20111007
  Transmission Date: 20120608
  Serious: No
  Sender: FDA-Public Use
  Company Number: US-BRISTOL-MYERS SQUIBB COMPANY-15537152

PATIENT
  Age: 66 Year
  Sex: Female
  Weight: 54 kg

DRUGS (1)
  1. GLUCOPHAGE [Suspect]

REACTIONS (12)
  - WEIGHT DECREASED [None]
  - CATARACT [None]
  - ALOPECIA [None]
  - GAIT DISTURBANCE [None]
  - FATIGUE [None]
  - DIZZINESS [None]
  - DECREASED APPETITE [None]
  - ASTHENIA [None]
  - MYALGIA [None]
  - DIARRHOEA [None]
  - NAUSEA [None]
  - CHILLS [None]
